FAERS Safety Report 5250023-8 (Version None)
Quarter: 2007Q1

REPORT INFORMATION
  Report Type: 
  Country: None (occurrence: None)
  Receive Date: 20070228
  Receipt Date: 20060309
  Transmission Date: 20070707
  Serious: No
  Sender: FDA-Public Use
  Company Number: US-GLAXOSMITHKLINE-A0590924A

PATIENT
  Age: 49 Year
  Sex: Male

DRUGS (3)
  1. LAMICTAL [Suspect]
     Indication: EPILEPSY
     Dosage: 400MG TWICE PER DAY
     Route: 048
  2. DILANTIN [Concomitant]
     Dosage: 250MG AT NIGHT
     Route: 048
  3. TEGRETOL [Concomitant]
     Dosage: 600MG THREE TIMES PER DAY
     Route: 048

REACTIONS (4)
  - INCREASED APPETITE [None]
  - IRRITABILITY [None]
  - MOOD SWINGS [None]
  - WEIGHT INCREASED [None]
